FAERS Safety Report 5973215-9 (Version None)
Quarter: 2008Q4

REPORT INFORMATION
  Report Type: 
  Country: None (occurrence: None)
  Receive Date: 20081124
  Receipt Date: 20081113
  Transmission Date: 20090506
  Serious: Yes (Hospitalization)
  Sender: FDA-Public Use
  Company Number: 231896K08USA

PATIENT
  Age: 65 Year
  Sex: Female

DRUGS (4)
  1. REBIF [Suspect]
     Indication: MULTIPLE SCLEROSIS
     Dosage: 44 MCG, 3 IN 1 WEEKS, SUBCUTANEOUS
     Route: 058
     Dates: start: 20080620
  2. LISINOPRIL [Concomitant]
  3. LIPITOR [Concomitant]
  4. FOSAMAX [Concomitant]

REACTIONS (2)
  - URINARY TRACT INFECTION [None]
  - UROSEPSIS [None]
